FAERS Safety Report 5238916-9 (Version None)
Quarter: 2007Q1

REPORT INFORMATION
  Report Type: 
  Country: None (occurrence: None)
  Receive Date: 20070215
  Receipt Date: 20070205
  Transmission Date: 20070707
  Serious: Yes (Life-Threatening, Hospitalization)
  Sender: FDA-Public Use
  Company Number: JP-MERCK-0701USA04498

PATIENT
  Age: 74 Year
  Sex: Female

DRUGS (10)
  1. PEPCID RPD [Suspect]
     Route: 048
     Dates: start: 20061101, end: 20070116
  2. LIPITOR [Concomitant]
     Route: 048
     Dates: end: 20070116
  3. ASPIRIN [Concomitant]
     Route: 048
     Dates: end: 20070116
  4. SIGMART [Concomitant]
     Route: 048
     Dates: end: 20070116
  5. VASOLAN [Concomitant]
     Route: 048
     Dates: end: 20070116
  6. TENORMIN [Concomitant]
     Route: 048
     Dates: end: 20070116
  7. ARTIST [Concomitant]
     Route: 048
     Dates: end: 20070116
  8. RODEX (WARFARIN) [Concomitant]
     Route: 048
     Dates: end: 20070116
  9. LANIRAPID [Concomitant]
     Route: 048
     Dates: end: 20070116
  10. AMOBAN [Concomitant]
     Route: 048
     Dates: end: 20070116

REACTIONS (1)
  - CARDIO-RESPIRATORY ARREST [None]
